FAERS Safety Report 6199493-1 (Version None)
Quarter: 2009Q2

REPORT INFORMATION
  Report Type: 
  Country: None (occurrence: None)
  Receive Date: 20090520
  Receipt Date: 20090520
  Transmission Date: 20091009
  Serious: Yes (Life-Threatening, Hospitalization)
  Sender: FDA-Public Use
  Company Number: None

PATIENT
  Age: 17 Month
  Sex: Male
  Weight: 9 kg

DRUGS (1)
  1. CLADRIBINE [Suspect]
     Indication: HISTIOCYTOSIS
     Dosage: 17 MG KG/KG/DOSE X 5 DAYS Q 3WKS 2 IV 5 MG/M2/DOSE X 5 DAYS Q 3 WKS 9 IV
     Route: 042
     Dates: start: 20080806, end: 20090302

REACTIONS (4)
  - APLASTIC ANAEMIA [None]
  - BACTERAEMIA [None]
  - NEUTROPENIA [None]
  - PANCYTOPENIA [None]
